FAERS Safety Report 7267012-4 (Version None)
Quarter: 2011Q1

REPORT INFORMATION
  Report Type: 
  Country: None (occurrence: None)
  Receive Date: 20110201
  Receipt Date: 20110122
  Transmission Date: 20110831
  Serious: Yes (Other)
  Sender: FDA-Public Use
  Company Number: GB-BRISTOL-MYERS SQUIBB COMPANY-15511173

PATIENT
  Sex: Female

DRUGS (1)
  1. APROVEL [Suspect]
     Indication: BLOOD PRESSURE
     Dosage: DURATION OF THERAPY:AROUND 20 YRS

REACTIONS (3)
  - COUGH [None]
  - ASTHMA [None]
  - LOWER RESPIRATORY TRACT INFECTION [None]
